FAERS Safety Report 4355718-6 (Version None)
Quarter: 2004Q2

REPORT INFORMATION
  Report Type: 
  Country: None (occurrence: None)
  Receive Date: 20040505
  Receipt Date: 20040427
  Transmission Date: 20050107
  Serious: Yes (Hospitalization)
  Sender: FDA-Public Use
  Company Number: US-JNJFOC-20040301114

PATIENT
  Age: 67 Year
  Sex: Male

DRUGS (9)
  1. DURAGESIC [Suspect]
     Indication: PAIN
     Dosage: SEE IMAGE
     Route: 062
     Dates: start: 20030701, end: 20030801
  2. DURAGESIC [Suspect]
     Indication: PAIN
     Dosage: SEE IMAGE
     Route: 062
     Dates: start: 20030801, end: 20040101
  3. LISINOPRIL [Concomitant]
  4. COUMADIN [Concomitant]
  5. LOPRESSOR [Concomitant]
  6. AMIODARONE HCL [Concomitant]
  7. FUROSEMIDE [Concomitant]
  8. ASPIRIN [Concomitant]
  9. PROTONIX [Concomitant]

REACTIONS (7)
  - ANOREXIA [None]
  - DRUG WITHDRAWAL SYNDROME [None]
  - DYSPNOEA [None]
  - FATIGUE [None]
  - NAUSEA [None]
  - OVERDOSE [None]
  - PNEUMONIA [None]
